FAERS Safety Report 11656303 (Version 1)
Quarter: 2015Q4

REPORT INFORMATION
  Report Type: Spontaneous
  Country: US (occurrence: US)
  Receive Date: 20151023
  Receipt Date: 20151023
  Transmission Date: 20160304
  Serious: Yes (Other)
  Sender: FDA-Public Use
  Company Number: US-TEVA-602765USA

PATIENT
  Sex: Female
  Weight: 73 kg

DRUGS (6)
  1. AROMASIN [Suspect]
     Active Substance: EXEMESTANE
     Indication: CANCER HORMONAL THERAPY
     Dosage: 25 MILLIGRAM DAILY;
     Route: 048
     Dates: start: 201504, end: 201508
  2. HCTZ [Concomitant]
     Active Substance: HYDROCHLOROTHIAZIDE
     Dosage: 25 MILLIGRAM DAILY;
     Route: 048
  3. AMLODIPINE [Suspect]
     Active Substance: AMLODIPINE BESYLATE
     Indication: BLOOD PRESSURE ABNORMAL
     Route: 048
  4. ANASTROZOLE. [Suspect]
     Active Substance: ANASTROZOLE
     Dosage: 1 MILLIGRAM DAILY;
     Route: 048
     Dates: start: 201011, end: 201502
  5. ATENOLOL. [Suspect]
     Active Substance: ATENOLOL
     Indication: BLOOD PRESSURE ABNORMAL
     Dosage: 100 MILLIGRAM DAILY;
     Route: 048
  6. ARMOUR [Concomitant]
     Indication: HYPOTHYROIDISM
     Route: 048

REACTIONS (6)
  - Connective tissue disorder [Unknown]
  - Suicidal ideation [Recovered/Resolved]
  - Pain [Recovering/Resolving]
  - Feeling abnormal [Recovering/Resolving]
  - Arthralgia [Unknown]
  - Arthritis [Unknown]
